FAERS Safety Report 7686085-8 (Version None)
Quarter: 2011Q3

REPORT INFORMATION
  Report Type: 
  Country: None (occurrence: None)
  Receive Date: 20110811
  Receipt Date: 20110727
  Transmission Date: 20111222
  Serious: Yes (Hospitalization)
  Sender: FDA-Public Use
  Company Number: 2011MA010761

PATIENT
  Age: 88 Year
  Sex: Female

DRUGS (7)
  1. ALBYL-E (ALBYL-ENTEROSOLUBILE) [Suspect]
     Dosage: 75;QD;PO
     Route: 048
  2. GLIMEPIRIDE [Concomitant]
  3. LORATADINE [Concomitant]
  4. METFORMIN HYDROCHLORIDE [Suspect]
     Indication: TYPE 2 DIABETES MELLITUS
     Dosage: 500 MG;BID;PO
     Route: 048
     Dates: end: 20110714
  5. ZOPICLONE [Concomitant]
  6. ATACAND HCT [Concomitant]
  7. SPIRONOLACTONE [Suspect]
     Dosage: 50 MG;QD;PO
     Route: 048
     Dates: end: 20110715

REACTIONS (4)
  - VOMITING [None]
  - NAUSEA [None]
  - DUODENAL ULCER [None]
  - DEHYDRATION [None]
